FAERS Safety Report 10720474 (Version 1)
Quarter: 2015Q1

REPORT INFORMATION
  Report Type: Spontaneous
  Country: US (occurrence: US)
  Receive Date: 20150119
  Receipt Date: 20150119
  Transmission Date: 20150721
  Serious: No
  Sender: FDA-Public Use
  Company Number: US-ASTRAZENECA-2015SE02699

PATIENT
  Sex: Female
  Weight: 54.4 kg

DRUGS (1)
  1. SYMBICORT [Suspect]
     Active Substance: BUDESONIDE\FORMOTEROL FUMARATE DIHYDRATE
     Indication: BRONCHIECTASIS
     Dosage: 80/4.5 MCG 2 PUFFS TWO TIMES A DAY
     Route: 055
     Dates: end: 2014

REACTIONS (5)
  - Paraesthesia [Recovered/Resolved]
  - Intentional product misuse [Recovered/Resolved]
  - Fatigue [Unknown]
  - Skin exfoliation [Unknown]
  - Rash [Unknown]
